FAERS Safety Report 6757755-0 (Version None)
Quarter: 2010Q2

REPORT INFORMATION
  Report Type: 
  Country: None (occurrence: None)
  Receive Date: 20100607
  Receipt Date: 20100602
  Transmission Date: 20101027
  Serious: Yes (Life-Threatening, Hospitalization, Other)
  Sender: FDA-Public Use
  Company Number: JP-JNJFOC-20100406675

PATIENT
  Sex: Female
  Weight: 41 kg

DRUGS (11)
  1. RISPERDAL CONSTA [Suspect]
     Indication: DRUG USE FOR UNKNOWN INDICATION
     Route: 030
  2. RISPERDAL [Suspect]
     Indication: DELUSION
     Route: 048
  3. RISPERDAL [Suspect]
     Route: 048
  4. RISPERDAL [Suspect]
     Indication: HALLUCINATION
     Route: 048
  5. RISPERDAL [Suspect]
     Route: 048
  6. UNKNOWN MEDICATION [Suspect]
     Indication: DRUG USE FOR UNKNOWN INDICATION
     Route: 065
  7. AMLODIPINE [Suspect]
     Indication: HYPERTENSION
     Route: 048
  8. CANDESARTAN CILEXETIL [Suspect]
     Indication: HYPERTENSION
     Route: 048
  9. LANSOPRAZOLE [Suspect]
     Indication: GASTRITIS
     Route: 048
  10. VASOLAN [Suspect]
     Indication: ARRHYTHMIA
     Route: 048
  11. SIGMART [Suspect]
     Indication: HYPERTENSION
     Route: 048

REACTIONS (4)
  - DEEP VEIN THROMBOSIS [None]
  - HYPOXIA [None]
  - LOSS OF CONSCIOUSNESS [None]
  - PULMONARY VENOUS THROMBOSIS [None]
